FAERS Safety Report 9487180 (Version 2)
Quarter: 2013Q4

REPORT INFORMATION
  Report Type: Spontaneous
  Country: JP (occurrence: JP)
  Receive Date: 20130829
  Receipt Date: 20131024
  Transmission Date: 20140711
  Serious: No
  Sender: FDA-Public Use
  Company Number: JP-AMGEN-JPNSP2013060861

PATIENT
  Age: 75 Year
  Sex: Female

DRUGS (5)
  1. ENBREL [Suspect]
     Indication: RHEUMATOID ARTHRITIS
     Dosage: 25 MG, DAILY
     Route: 058
  2. MICAMLO [Concomitant]
     Dosage: UNK
  3. TAKEPRON [Concomitant]
     Dosage: UNK
  4. PAXIL                              /00830802/ [Concomitant]
     Dosage: UNK
  5. FOSAMAC [Concomitant]
     Dosage: UNK

REACTIONS (1)
  - Laboratory test abnormal [Unknown]
